FAERS Safety Report 4558969-0 (Version None)
Quarter: 2005Q1

REPORT INFORMATION
  Report Type: 
  Country: None (occurrence: None)
  Receive Date: 20050121
  Receipt Date: 20050118
  Transmission Date: 20050727
  Serious: Yes (Hospitalization)
  Sender: FDA-Public Use
  Company Number: FR-MERCK-0501FRA00053

PATIENT
  Age: 79 Year
  Sex: Male

DRUGS (4)
  1. CANCIDAS [Suspect]
     Indication: PNEUMONIA
     Route: 042
     Dates: start: 20040909, end: 20040920
  2. RIFAMPIN [Suspect]
     Indication: PNEUMONIA
     Route: 042
     Dates: start: 20040908, end: 20040920
  3. CEFEPIME HYDROCHLORIDE [Suspect]
     Indication: PNEUMONIA
     Route: 042
     Dates: start: 20040912, end: 20040920
  4. VANCOMYCIN HYDROCHLORIDE [Suspect]
     Indication: PNEUMONIA
     Route: 042
     Dates: start: 20040909, end: 20040920

REACTIONS (1)
  - RENAL FAILURE [None]
